FAERS Safety Report 8954838 (Version 2)
Quarter: 2013Q1

REPORT INFORMATION
  Report Type: Report from Study
  Country: US (occurrence: US)
  Receive Date: 20121207
  Receipt Date: 20130204
  Transmission Date: 20140127
  Serious: No
  Sender: FDA-Public Use
  Company Number: US-VERTEX PHARMACEUTICALS INC.-2012-025517

PATIENT
  Age: 36 Year
  Sex: Male
  Weight: 75 kg

DRUGS (8)
  1. VX-770 [Suspect]
     Indication: CYSTIC FIBROSIS
     Dosage: 150 MG, BID
     Route: 048
     Dates: start: 20121106
  2. CREON [Concomitant]
  3. TOBI [Concomitant]
     Route: 045
  4. ALBUTEROL [Concomitant]
     Route: 055
  5. ADVAIR [Concomitant]
  6. PULMOZYME [Concomitant]
  7. AQUADEKS [Concomitant]
  8. CAYSTON [Concomitant]
     Dosage: 75 MG, UNK
     Route: 055

REACTIONS (6)
  - Productive cough [Recovered/Resolved]
  - Influenza like illness [Unknown]
  - Chest discomfort [Unknown]
  - Sinus congestion [Not Recovered/Not Resolved]
  - Headache [Not Recovered/Not Resolved]
  - Nasal congestion [Unknown]
